FAERS Safety Report 13191615 (Version 9)
Quarter: 2017Q2

REPORT INFORMATION
  Report Type: Report from Study
  Country: JP (occurrence: JP)
  Receive Date: 20170207
  Receipt Date: 20170414
  Transmission Date: 20170830
  Serious: Yes (Life-Threatening)
  Sender: FDA-Public Use
  Company Number: JP-ROCHE-1888931

PATIENT
  Age: 53 Year
  Sex: Male
  Weight: 59.9 kg

DRUGS (44)
  1. LYRICA [Concomitant]
     Active Substance: PREGABALIN
     Indication: CANCER PAIN
     Route: 065
     Dates: start: 20161216, end: 20170129
  2. ALOXI [Concomitant]
     Active Substance: PALONOSETRON HYDROCHLORIDE
     Indication: PROPHYLAXIS
     Route: 065
     Dates: start: 20170117, end: 20170117
  3. FEXOFENADINE [Concomitant]
     Active Substance: FEXOFENADINE\FEXOFENADINE HYDROCHLORIDE
     Indication: RASH
     Route: 065
     Dates: start: 20170128, end: 20170129
  4. WHITE PETROLATUM [Concomitant]
     Active Substance: PETROLATUM
     Indication: DRY MOUTH
     Route: 065
     Dates: start: 20170131
  5. BAKTAR [Concomitant]
     Active Substance: SULFAMETHOXAZOLE\TRIMETHOPRIM
     Indication: PROPHYLAXIS
     Route: 065
     Dates: start: 20170201, end: 20170202
  6. TAZOPIPE [Concomitant]
     Active Substance: PIPERACILLIN SODIUM\TAZOBACTAM SODIUM
     Indication: PROPHYLAXIS
     Route: 065
     Dates: start: 20170202, end: 20170210
  7. OXYCONTIN [Concomitant]
     Active Substance: OXYCODONE HYDROCHLORIDE
     Indication: CANCER PAIN
     Route: 065
     Dates: start: 20161209, end: 20170130
  8. PRIMPERAN [Concomitant]
     Active Substance: METOCLOPRAMIDE HYDROCHLORIDE
     Indication: NAUSEA
     Route: 065
     Dates: start: 20170130, end: 20170130
  9. CALONAL [Concomitant]
     Active Substance: ACETAMINOPHEN
     Indication: CANCER PAIN
     Route: 065
     Dates: start: 20161111, end: 20170202
  10. METHYCOBAL [Concomitant]
     Active Substance: METHYLCOBALAMIN
     Indication: PROPHYLAXIS
     Route: 065
     Dates: start: 20170106, end: 20170106
  11. VEEN-F [Concomitant]
     Indication: PROPHYLAXIS
     Route: 065
     Dates: start: 20170117, end: 20170117
  12. PREDONINE [Concomitant]
     Active Substance: PREDNISOLONE
     Route: 065
     Dates: start: 20170208
  13. OMEPRAZOLE. [Concomitant]
     Active Substance: OMEPRAZOLE
     Route: 065
     Dates: start: 20170213
  14. POLARAMINE [Concomitant]
     Active Substance: DEXCHLORPHENIRAMINE MALEATE
     Indication: PROPHYLAXIS
     Route: 065
     Dates: start: 20170131, end: 20170131
  15. ACTEMRA [Concomitant]
     Active Substance: TOCILIZUMAB
     Indication: CYTOKINE RELEASE SYNDROME
     Route: 065
     Dates: start: 20170131, end: 20170131
  16. XYLOCAINE [Concomitant]
     Active Substance: LIDOCAINE HYDROCHLORIDE
     Indication: DRY MOUTH
     Route: 065
     Dates: start: 20170206, end: 20170213
  17. PEMETREXED. [Suspect]
     Active Substance: PEMETREXED
     Indication: NON-SMALL CELL LUNG CANCER STAGE IV
     Dosage: LAST DOSE PRIOR TO AE ONSET 17/JAN/2017, 865 MG
     Route: 042
     Dates: start: 20170117
  18. OXINORM (JAPAN) [Concomitant]
     Active Substance: OXYCODONE HYDROCHLORIDE
     Indication: CANCER PAIN
     Route: 065
     Dates: start: 20161118, end: 20170129
  19. AMITIZA [Concomitant]
     Active Substance: LUBIPROSTONE
     Indication: CONSTIPATION
     Route: 065
     Dates: start: 20170220, end: 20170220
  20. ATEZOLIZUMAB [Suspect]
     Active Substance: ATEZOLIZUMAB
     Indication: NON-SMALL CELL LUNG CANCER STAGE IV
     Dosage: LAST DOSE PRIOR TO AE ONSET 17/JAN/2017, 1200 MG
     Route: 042
     Dates: start: 20170117
  21. PANVITAN [Concomitant]
     Indication: PROPHYLAXIS
     Route: 065
     Dates: start: 20170106, end: 20170130
  22. DEXART [Concomitant]
     Active Substance: DEXAMETHASONE SODIUM PHOSPHATE
     Indication: PROPHYLAXIS
     Route: 065
     Dates: start: 20170117, end: 20170117
  23. DECADRON [Concomitant]
     Active Substance: DEXAMETHASONE
  24. MANNITOL. [Concomitant]
     Active Substance: MANNITOL
     Indication: PROPHYLAXIS
     Route: 065
     Dates: start: 20170117, end: 20170117
  25. NAIXAN [Concomitant]
     Active Substance: NAPROXEN SODIUM
     Indication: PYREXIA
     Route: 065
     Dates: start: 20170127, end: 20170130
  26. NEXIUM [Concomitant]
     Active Substance: ESOMEPRAZOLE MAGNESIUM
     Indication: PROPHYLAXIS
     Route: 065
     Dates: start: 20170127, end: 20170130
  27. PREDONINE [Concomitant]
     Active Substance: PREDNISOLONE
     Indication: CYTOKINE RELEASE SYNDROME
     Route: 065
     Dates: start: 20170130, end: 20170130
  28. CISPLATIN. [Suspect]
     Active Substance: CISPLATIN
     Indication: NON-SMALL CELL LUNG CANCER STAGE IV
     Dosage: LAST DOSE PROR TO AE ONSET 17/JAN/2017, 129 MG
     Route: 042
     Dates: start: 20170117
  29. HEPARINOID CREAM [Concomitant]
     Indication: RADIATION SKIN INJURY
     Dosage: OIL-BASED CREAM
     Route: 065
     Dates: start: 20170104
  30. MAGNESIUM SULFATE. [Concomitant]
     Active Substance: MAGNESIUM SULFATE
     Indication: PROPHYLAXIS
     Dosage: MAGNESIUM SULFATE HYDRATE
     Route: 065
     Dates: start: 20170117, end: 20170117
  31. RESTAMIN [Concomitant]
     Active Substance: DIPHENHYDRAMINE
     Indication: RASH
     Route: 065
     Dates: start: 20170127
  32. OMEPRAZOLE. [Concomitant]
     Active Substance: OMEPRAZOLE
     Indication: PROPHYLAXIS
     Route: 065
     Dates: start: 20170131, end: 20170213
  33. HUMULIN R [Concomitant]
     Active Substance: INSULIN HUMAN
     Indication: HYPERGLYCAEMIA
     Route: 065
     Dates: start: 20170131
  34. AZULENE [Concomitant]
     Active Substance: AZULENE
     Indication: DRY MOUTH
     Route: 065
     Dates: start: 20170206, end: 20170213
  35. VITAMEDIN (JAPAN) [Concomitant]
     Route: 065
     Dates: start: 20170202, end: 20170212
  36. VITAMEDIN (JAPAN) [Concomitant]
     Route: 065
     Dates: start: 20170202, end: 20170212
  37. TAZOPIPE [Concomitant]
     Active Substance: PIPERACILLIN SODIUM\TAZOBACTAM SODIUM
     Indication: PROPHYLAXIS
     Route: 065
     Dates: start: 20170202, end: 20170210
  38. SENNOSIDE [Concomitant]
     Active Substance: SENNOSIDES
     Indication: CONSTIPATION
     Route: 065
     Dates: start: 20170219, end: 20170219
  39. MAGMITT [Concomitant]
     Active Substance: MAGNESIUM OXIDE
     Indication: PROPHYLAXIS
     Route: 065
     Dates: start: 20161218, end: 20170202
  40. PROEMEND [Concomitant]
     Active Substance: FOSAPREPITANT
     Indication: PROPHYLAXIS
     Route: 065
     Dates: start: 20170117, end: 20170117
  41. NERISONA [Concomitant]
     Active Substance: DIFLUCORTOLONE VALERATE
     Indication: RASH
     Route: 065
     Dates: start: 20170128
  42. FENTOS TAPE [Concomitant]
     Active Substance: FENTANYL
     Indication: CANCER PAIN
     Route: 065
     Dates: start: 20170130, end: 20170203
  43. METHYLPREDNISOLONE. [Concomitant]
     Active Substance: METHYLPREDNISOLONE
     Indication: CYTOKINE RELEASE SYNDROME
     Route: 065
     Dates: start: 20170130
  44. AZUNOL [Concomitant]
     Active Substance: SODIUM GUALENATE
     Route: 065
     Dates: start: 20170220

REACTIONS (1)
  - Cardiac failure [Recovered/Resolved]

NARRATIVE: CASE EVENT DATE: 20170202
